FAERS Safety Report 4431043-X (Version None)
Quarter: 2004Q3

REPORT INFORMATION
  Report Type: 
  Country: None (occurrence: None)
  Receive Date: 20040824
  Receipt Date: 20031027
  Transmission Date: 20050211
  Serious: No
  Sender: FDA-Public Use
  Company Number: US-BRISTOL-MYERS SQUIBB COMPANY-12419990

PATIENT
  Age: 86 Year
  Sex: Female
  Weight: 82 kg

DRUGS (1)
  1. LAC-HYDRIN [Suspect]
     Route: 061

REACTIONS (3)
  - BURNING SENSATION [None]
  - ERYTHEMA [None]
  - JOINT SWELLING [None]
